FAERS Safety Report 16939101 (Version 1)
Quarter: 2019Q4

REPORT INFORMATION
  Report Type: Spontaneous
  Country: CA (occurrence: CA)
  Receive Date: 20191020
  Receipt Date: 20191020
  Transmission Date: 20200122
  Serious: Yes (Other)
  Sender: FDA-Public Use
  Company Number: CA-TEVA-2019-CA-1122840

PATIENT
  Sex: Female

DRUGS (3)
  1. STALEVO [Suspect]
     Active Substance: CARBIDOPA\ENTACAPONE\LEVODOPA
     Indication: PARKINSON^S DISEASE
     Dosage: 100/25 MG, THREE TIMES DAILY
     Route: 065
  2. TEVA-LEVOCARBIDOPA [Suspect]
     Active Substance: CARBIDOPA\LEVODOPA
     Indication: PARKINSON^S DISEASE
     Dosage: TEVA-LEVOCARB NOVO-CANADA, 100/25MG, THREE TIME DAILY
     Route: 065
  3. APO-LEVOCARB [Suspect]
     Active Substance: CARBIDOPA\LEVODOPA
     Indication: PARKINSON^S DISEASE
     Dosage: 100/25MG, THREE TIME DAILY
     Route: 065

REACTIONS (7)
  - Drug ineffective [Unknown]
  - Muscle rigidity [Unknown]
  - Musculoskeletal stiffness [Unknown]
  - Immobile [Unknown]
  - Condition aggravated [Unknown]
  - Gait inability [Unknown]
  - Product substitution issue [Unknown]
